FAERS Safety Report 14003853 (Version 2)
Quarter: 2017Q3

REPORT INFORMATION
  Report Type: Spontaneous
  Country: FR (occurrence: FR)
  Receive Date: 20170923
  Receipt Date: 20170927
  Transmission Date: 20171128
  Serious: Yes (Other)
  Sender: FDA-Public Use
  Company Number: FR-MERCK KGAA-2027469

PATIENT
  Age: 25 Year
  Sex: Female

DRUGS (4)
  1. MYCOSTER (CICLOPIROX)(1 PERCENT)(CICLOPIROX) [Concomitant]
     Route: 061
  2. KETODERM (KETOCONAZOLE)(2 PERCENT, CREAM)(KETOCONAZOLE) [Concomitant]
  3. NOVOTHYROX [Suspect]
     Active Substance: LEVOTHYROXINE SODIUM
     Indication: HYPOTHYROIDISM
     Route: 048
     Dates: start: 20160801
  4. LEELOO(EUGYNON)(0.1 MILLIGRAM,TABLET)(ETHINYLESTRADIOL, LEVONORGESTREL [Concomitant]
     Route: 048

REACTIONS (6)
  - Cold sweat [Not Recovered/Not Resolved]
  - Alopecia [Not Recovered/Not Resolved]
  - Fatigue [Not Recovered/Not Resolved]
  - Hunger [Not Recovered/Not Resolved]
  - Insomnia [Not Recovered/Not Resolved]
  - Loss of libido [Not Recovered/Not Resolved]

NARRATIVE: CASE EVENT DATE: 20170815
